FAERS Safety Report 9046523 (Version 1)
Quarter: 2013Q1

REPORT INFORMATION
  Report Type: Spontaneous
  Country: CH (occurrence: CH)
  Receive Date: 20130204
  Receipt Date: 20130204
  Transmission Date: 20140127
  Serious: Yes (Other)
  Sender: FDA-Public Use
  Company Number: CH-009507513-1301CHE014781

PATIENT
  Age: 72 Year
  Sex: Female

DRUGS (1)
  1. REMERON [Suspect]
     Dosage: 600 MG, ONCE
     Route: 048
     Dates: start: 20121228, end: 20121228

REACTIONS (3)
  - Intentional overdose [Recovered/Resolved]
  - Suicide attempt [Recovered/Resolved]
  - Vomiting [Recovered/Resolved]
